FAERS Safety Report 4314024-6 (Version None)
Quarter: 2004Q1

REPORT INFORMATION
  Report Type: 
  Country: None (occurrence: None)
  Receive Date: 20040305
  Receipt Date: 20040224
  Transmission Date: 20041129
  Serious: Yes (Life-Threatening, Hospitalization)
  Sender: FDA-Public Use
  Company Number: 04P-062-0251662-00

PATIENT
  Age: 70 Year
  Sex: Male

DRUGS (1)
  1. BIAXIN [Suspect]
     Indication: PNEUMONIA
     Dosage: PER ORAL
     Route: 048
     Dates: start: 20040201, end: 20040201

REACTIONS (2)
  - HEPATIC FAILURE [None]
  - LOSS OF CONSCIOUSNESS [None]
